FAERS Safety Report 4711285-6 (Version None)
Quarter: 2005Q3

REPORT INFORMATION
  Report Type: 
  Country: None (occurrence: None)
  Receive Date: 20050711
  Receipt Date: 20050629
  Transmission Date: 20060218
  Serious: Yes (Hospitalization)
  Sender: FDA-Public Use
  Company Number: C05-C-102

PATIENT
  Age: 58 Year
  Sex: Male
  Weight: 104.3273 kg

DRUGS (3)
  1. LITHIUM CARBONATE CAP [Suspect]
     Indication: BIPOLAR DISORDER
     Dosage: 300 MG AM, 600 MG PM
     Dates: start: 20040901, end: 20050516
  2. RISPERDAL [Concomitant]
  3. ATIVAN [Concomitant]

REACTIONS (24)
  - BRADYPHRENIA [None]
  - CONFUSIONAL STATE [None]
  - CYCLOTHYMIC DISORDER [None]
  - DECREASED INTEREST [None]
  - DEPRESSION [None]
  - DISTURBANCE IN ATTENTION [None]
  - DRUG INEFFECTIVE [None]
  - FEELING ABNORMAL [None]
  - FEELINGS OF WORTHLESSNESS [None]
  - HYPOKINESIA [None]
  - IMPAIRED SELF-CARE [None]
  - JUDGEMENT IMPAIRED [None]
  - MAJOR DEPRESSION [None]
  - MANIA [None]
  - MEDICATION ERROR [None]
  - MEMORY IMPAIRMENT [None]
  - MOOD ALTERED [None]
  - PHARMACEUTICAL PRODUCT COMPLAINT [None]
  - PSYCHOMOTOR RETARDATION [None]
  - PSYCHOTIC DISORDER [None]
  - RESTLESSNESS [None]
  - SLUGGISHNESS [None]
  - SUICIDAL IDEATION [None]
  - THERAPY NON-RESPONDER [None]
